FAERS Safety Report 12742680 (Version 5)
Quarter: 2016Q4

REPORT INFORMATION
  Report Type: Spontaneous
  Country: IE (occurrence: IE)
  Receive Date: 20160914
  Receipt Date: 20161111
  Transmission Date: 20170207
  Serious: Yes (Other)
  Sender: FDA-Public Use
  Company Number: IE-JNJFOC-20160907227

PATIENT
  Age: 68 Year
  Sex: Male
  Weight: 68.4 kg

DRUGS (7)
  1. APIXABAN [Concomitant]
     Active Substance: APIXABAN
     Indication: ATRIAL FIBRILLATION
     Route: 048
  2. BISOPROLOL [Concomitant]
     Active Substance: BISOPROLOL
     Indication: ATRIAL FIBRILLATION
     Route: 048
  3. LANSOPRAZOLE. [Concomitant]
     Active Substance: LANSOPRAZOLE
     Route: 048
  4. RAMIPRIL. [Concomitant]
     Active Substance: RAMIPRIL
     Indication: HYPERTENSION
     Route: 065
     Dates: end: 20160909
  5. IMBRUVICA [Suspect]
     Active Substance: IBRUTINIB
     Indication: MANTLE CELL LYMPHOMA
     Route: 048
     Dates: start: 20160816, end: 20160914
  6. FEBUXOSTAT. [Concomitant]
     Active Substance: FEBUXOSTAT
     Indication: GOUT
     Route: 048
  7. RITUXIMAB [Concomitant]
     Active Substance: RITUXIMAB
     Route: 065
     Dates: end: 20160808

REACTIONS (3)
  - Lymphoma [Unknown]
  - Blood creatinine increased [Unknown]
  - Paraneoplastic syndrome [Recovered/Resolved]

NARRATIVE: CASE EVENT DATE: 2016
